FAERS Safety Report 5565874-X (Version None)
Quarter: 2007Q4

REPORT INFORMATION
  Report Type: 
  Country: None (occurrence: None)
  Receive Date: 20071213
  Receipt Date: 20071129
  Transmission Date: 20080405
  Serious: Yes (Death)
  Sender: FDA-Public Use
  Company Number: 2007S1013068

PATIENT
  Age: 0 Year
  Sex: Female
  Weight: 2.45 kg

DRUGS (4)
  1. CUROSURF [Suspect]
     Indication: NEONATAL RESPIRATORY DISTRESS SYNDROME
     Dosage: 100 MG/KG; X1; ENDOTRACHEAL
     Route: 007
     Dates: start: 20071127, end: 20071127
  2. FENTANYL [Concomitant]
  3. GENTAMICIN [Concomitant]
  4. AMPICILLIN [Concomitant]

REACTIONS (3)
  - DEATH NEONATAL [None]
  - GENERAL PHYSICAL HEALTH DETERIORATION [None]
  - PULMONARY HAEMORRHAGE [None]
